FAERS Safety Report 20778387 (Version 1)
Quarter: 2022Q2

REPORT INFORMATION
  Report Type: Spontaneous
  Country: US (occurrence: None)
  Receive Date: 20220503
  Receipt Date: 20220503
  Transmission Date: 20220721
  Serious: No
  Sender: FDA-Public Use
  Company Number: None

PATIENT
  Age: 68 Year
  Sex: Male
  Weight: 93.44 kg

DRUGS (14)
  1. ABIRATERONE [Suspect]
     Active Substance: ABIRATERONE
     Indication: Prostate cancer
     Dosage: OTHER FREQUENCY : EVERY AM;?
     Route: 048
     Dates: start: 20220324
  2. DOCUSATE [Concomitant]
     Active Substance: DOCUSATE
  3. ELIGARD [Concomitant]
     Active Substance: LEUPROLIDE ACETATE
  4. FERROUS SULFATE [Concomitant]
     Active Substance: FERROUS SULFATE
  5. FLOMAX [Concomitant]
     Active Substance: TAMSULOSIN HYDROCHLORIDE
  6. IRON [Concomitant]
     Active Substance: IRON
  7. LYRICA [Concomitant]
     Active Substance: PREGABALIN
  8. NALOXONE [Concomitant]
     Active Substance: NALOXONE
  9. OMEPRAZOLE [Concomitant]
     Active Substance: OMEPRAZOLE
  10. OXYBUTYNIN [Concomitant]
     Active Substance: OXYBUTYNIN
  11. PREDNISONE [Concomitant]
     Active Substance: PREDNISONE
  12. TRAZODODONE [Concomitant]
  13. TRIAMCINOLONE [Concomitant]
     Active Substance: TRIAMCINOLONE
  14. VITAMIN D3 [Concomitant]
     Active Substance: CHOLECALCIFEROL

REACTIONS (1)
  - Prostatic specific antigen increased [None]
